FAERS Safety Report 6071487-6 (Version None)
Quarter: 2009Q1

REPORT INFORMATION
  Report Type: 
  Country: None (occurrence: None)
  Receive Date: 20090206
  Receipt Date: 20090206
  Transmission Date: 20090719
  Serious: Yes (Other)
  Sender: FDA-Public Use
  Company Number: None

PATIENT
  Age: 80 Year
  Sex: Female
  Weight: 83.4619 kg

DRUGS (2)
  1. RITUXAN [Suspect]
     Dosage: 725 MG IVSS
     Route: 042
     Dates: start: 20090205
  2. RITUXAN [Suspect]

REACTIONS (8)
  - ARTHRALGIA [None]
  - BLOOD PRESSURE SYSTOLIC INCREASED [None]
  - CHILLS [None]
  - DYSPNOEA [None]
  - HEART RATE INCREASED [None]
  - INFUSION RELATED REACTION [None]
  - OXYGEN SATURATION DECREASED [None]
  - RESPIRATORY RATE INCREASED [None]
